FAERS Safety Report 5797190-5 (Version None)
Quarter: 2008Q2

REPORT INFORMATION
  Report Type: 
  Country: None (occurrence: None)
  Receive Date: 20080627
  Receipt Date: 20080612
  Transmission Date: 20081010
  Serious: Yes (Life-Threatening)
  Sender: FDA-Public Use
  Company Number: ENC200800118

PATIENT
  Age: 79 Year
  Sex: Male

DRUGS (1)
  1. ARGATROBAN(ARGATROBAN) INJECTION, 100 MG/100MG [Suspect]
     Indication: ARTERIOSCLEROSIS OBLITERANS

REACTIONS (11)
  - ANAPHYLACTIC SHOCK [None]
  - BLOOD PRESSURE DECREASED [None]
  - BLOOD PRESSURE IMMEASURABLE [None]
  - BLOOD PRESSURE SYSTOLIC DECREASED [None]
  - BRADYCARDIA [None]
  - DEPRESSED LEVEL OF CONSCIOUSNESS [None]
  - DRUG HYPERSENSITIVITY [None]
  - ELECTROCARDIOGRAM ST SEGMENT ABNORMAL [None]
  - GAZE PALSY [None]
  - LOSS OF CONSCIOUSNESS [None]
  - PARAESTHESIA [None]
